FAERS Safety Report 7420678-8 (Version None)
Quarter: 2011Q2

REPORT INFORMATION
  Report Type: 
  Country: None (occurrence: None)
  Receive Date: 20110418
  Receipt Date: 20090329
  Transmission Date: 20111010
  Serious: Yes (Death, Other)
  Sender: FDA-Public Use
  Company Number: US-BAYER-200916416NA

PATIENT
  Age: 65 Year
  Sex: Male
  Weight: 58.957 kg

DRUGS (39)
  1. TRASYLOL [Suspect]
     Indication: CORONARY ARTERY BYPASS
     Dosage: 100CC THEN 50CC/HR
     Dates: start: 20050503, end: 20050503
  2. HYDROCHLOROTHIAZIDE [Concomitant]
     Dosage: 25 MG, UNK
     Route: 048
     Dates: start: 20040101
  3. TERAZOSIN [Concomitant]
     Dosage: 5 MG, UNK
     Route: 048
     Dates: start: 20040101
  4. GENTAMICIN [Concomitant]
     Dosage: 80 MG, UNK
     Route: 042
     Dates: start: 20050503
  5. ANCEF [Concomitant]
     Dosage: 1 G, UNK
     Route: 042
     Dates: start: 20050503
  6. NOREPINEPHRINE BITARTRATE [Concomitant]
     Dosage: UNK
     Route: 042
     Dates: start: 20050503
  7. ESMOLOL [Concomitant]
     Dosage: UNK
     Route: 042
     Dates: start: 20050504
  8. PLATELETS [Concomitant]
     Dosage: 8 U, UNK
     Dates: start: 20050503
  9. TRASYLOL [Suspect]
     Indication: MITRAL VALVE REPLACEMENT
     Dosage: 200CC THEN 50CC/HR
     Route: 042
     Dates: start: 20050503, end: 20050504
  10. PHENYLEPHRINE HCL [Concomitant]
     Dosage: 50MG/250ML
     Route: 042
     Dates: start: 20050503
  11. VERAPAMIL [Concomitant]
     Dosage: UNK
     Route: 042
     Dates: start: 20050503
  12. DILTIAZEM [Concomitant]
     Dosage: UNK
     Route: 042
     Dates: start: 20050503
  13. INSULIN [Concomitant]
     Dosage: 100 U, UNK
     Route: 042
     Dates: start: 20050503
  14. NITROGLYCERIN [Concomitant]
     Dosage: 5 ML, UNK
     Route: 042
     Dates: start: 20050504
  15. ALTACE [Concomitant]
     Dosage: 10 MG, UNK
     Route: 048
     Dates: start: 20050101
  16. AMIODARONE [Concomitant]
     Dosage: 300 MG, UNK
     Route: 042
     Dates: start: 20050503
  17. AMIODARONE [Concomitant]
     Dosage: DRIP
     Route: 042
     Dates: start: 20050503
  18. LIDOCAINE [Concomitant]
     Dosage: 100 MG, UNK
     Route: 042
     Dates: start: 20050503
  19. DOBUTAMINE HCL [Concomitant]
     Dosage: UNK
     Route: 042
     Dates: start: 20050503
  20. ACETYLSALICYLIC ACID SRT [Concomitant]
     Dosage: 325 MG, UNK
     Route: 048
     Dates: start: 19920101
  21. LIPITOR [Concomitant]
     Dosage: 10 MG, UNK
     Route: 048
     Dates: start: 19920101
  22. PLAVIX [Concomitant]
     Dosage: 75 MG, UNK
     Route: 048
     Dates: start: 20050101
  23. FENTANYL [Concomitant]
     Dosage: 100 MIC
     Route: 042
     Dates: start: 20050503
  24. HEPARIN [Concomitant]
     Dosage: 19000 U, UNK
     Route: 042
     Dates: start: 20050504
  25. NITROLINGUAL [Concomitant]
     Dosage: SPRAY 2X
     Route: 048
     Dates: start: 19920101
  26. NORVASC [Concomitant]
     Dosage: UNK
     Route: 048
     Dates: start: 20040101
  27. NORCURON [Concomitant]
     Dosage: 10 MG, UNK
     Route: 042
     Dates: start: 20050504
  28. FENTANYL [Concomitant]
     Dosage: UNK
     Route: 042
     Dates: start: 20050504
  29. ANCEF [Concomitant]
     Dosage: 1 G, UNK
     Route: 042
     Dates: start: 20050503
  30. THROMBIN LOCAL SOLUTION [Concomitant]
     Dosage: UNK
     Route: 042
     Dates: start: 20050503
  31. PAPAVERINE [Concomitant]
     Dosage: 60 MG, UNK
     Route: 042
     Dates: start: 20050503
  32. TOPROL-XL [Concomitant]
     Dosage: 12.5 MG, UNK
     Route: 048
     Dates: start: 20040101
  33. ZOCOR [Concomitant]
     Dosage: 10 MG, UNK
     Route: 048
     Dates: start: 20020101
  34. VERSED [Concomitant]
     Dosage: 12 MG, UNK
     Route: 042
     Dates: start: 20050503
  35. NOREPINEPHRINE BITARTRATE [Concomitant]
     Dosage: 16MG/250ML
     Route: 042
     Dates: start: 20050503
  36. NEO-SYNEPHRINOL [Concomitant]
     Dosage: UNK
     Route: 042
     Dates: start: 20050503
  37. HEPARIN [Concomitant]
     Dosage: 1000 U, UNK
     Route: 042
     Dates: start: 20050503
  38. PLASMA [Concomitant]
     Dosage: 7 U, UNK
     Dates: start: 20050503
  39. RED BLOOD CELLS [Concomitant]
     Dosage: 8 U, UNK
     Dates: start: 20050503

REACTIONS (3)
  - CORONARY ARTERY THROMBOSIS [None]
  - CARDIAC DISORDER [None]
  - INJURY [None]
